FAERS Safety Report 4417877-6 (Version None)
Quarter: 2004Q2

REPORT INFORMATION
  Report Type: 
  Country: None (occurrence: None)
  Receive Date: 20040621
  Receipt Date: 20040504
  Transmission Date: 20050107
  Serious: Yes (Other)
  Sender: FDA-Public Use
  Company Number: PHEH2004US04927

PATIENT
  Age: 63 Year
  Sex: Female

DRUGS (8)
  1. ZOMETA [Suspect]
  2. CELEBREX [Concomitant]
  3. NEURONTIN [Concomitant]
  4. ZOLOFT [Concomitant]
  5. WARFARIN SODIUM [Concomitant]
  6. POTASSIUM (POTASSIUM) [Concomitant]
  7. ZOFRON (ONDANSETRON HYDROCHLORIDE) [Concomitant]
  8. ACIPHEX [Concomitant]

REACTIONS (4)
  - ASEPTIC NECROSIS BONE [None]
  - DENTAL CARIES [None]
  - OSTEOMYELITIS ACUTE [None]
  - TOOTH EXTRACTION [None]
